FAERS Safety Report 4893495-0 (Version None)
Quarter: 2006Q1

REPORT INFORMATION
  Report Type: 
  Country: None (occurrence: None)
  Receive Date: 20060127
  Receipt Date: 20051129
  Transmission Date: 20060701
  Serious: No
  Sender: FDA-Public Use
  Company Number: US-BRISTOL-MYERS SQUIBB COMPANY-13198387

PATIENT
  Age: 42 Year
  Sex: Female
  Weight: 53 kg

DRUGS (2)
  1. KENALOG-10 [Suspect]
     Indication: DERMAL CYST
     Route: 023
  2. LIDOCAINE [Concomitant]
     Route: 023

REACTIONS (1)
  - INJECTION SITE DISCOLOURATION [None]
